FAERS Safety Report 23650597 (Version 1)
Quarter: 2024Q1

REPORT INFORMATION
  Report Type: Report from Study
  Country: US (occurrence: US)
  Receive Date: 20240320
  Receipt Date: 20240320
  Transmission Date: 20240410
  Serious: Yes (Hospitalization, Other)
  Sender: FDA-Public Use
  Company Number: US-ABBVIE-5673299

PATIENT
  Sex: Female
  Weight: 111.13 kg

DRUGS (9)
  1. SKYRIZI [Suspect]
     Active Substance: RISANKIZUMAB-RZAA
     Indication: Psoriasis
     Route: 058
     Dates: start: 20240229
  2. SKYRIZI [Suspect]
     Active Substance: RISANKIZUMAB-RZAA
     Indication: Arthritis
     Route: 058
     Dates: start: 20231205
  3. SKYRIZI [Suspect]
     Active Substance: RISANKIZUMAB-RZAA
     Dosage: DISCONTINUED IN 2023
     Route: 058
     Dates: start: 202308
  4. SKYRIZI [Suspect]
     Active Substance: RISANKIZUMAB-RZAA
     Indication: Product used for unknown indication
     Route: 042
     Dates: start: 20220810
  5. VITAMIN D [Concomitant]
     Active Substance: VITAMIN D NOS
     Indication: Vitamin supplementation
  6. ELIQUIS [Concomitant]
     Active Substance: APIXABAN
     Indication: Anticoagulant therapy
     Dosage: STRENGTH: 5 MILLIGRAM
  7. LAMICTAL [Concomitant]
     Active Substance: LAMOTRIGINE
     Indication: Depression
  8. TRAZODONE [Concomitant]
     Active Substance: TRAZODONE HYDROCHLORIDE
     Indication: Sleep disorder
  9. LEXAPRO [Concomitant]
     Active Substance: ESCITALOPRAM OXALATE
     Indication: Depression

REACTIONS (14)
  - Thrombosis [Recovered/Resolved]
  - Arthralgia [Recovered/Resolved]
  - Pain [Recovered/Resolved]
  - Vein collapse [Recovered/Resolved]
  - Musculoskeletal stiffness [Recovered/Resolved]
  - Influenza [Unknown]
  - Peripheral swelling [Recovered/Resolved]
  - Sneezing [Recovered/Resolved]
  - Musculoskeletal stiffness [Recovered/Resolved]
  - Swelling face [Recovered/Resolved]
  - Arthralgia [Recovering/Resolving]
  - Musculoskeletal stiffness [Recovering/Resolving]
  - Arthralgia [Recovered/Resolved]
  - Thoracic outlet syndrome [Recovered/Resolved]

NARRATIVE: CASE EVENT DATE: 20230101
